FAERS Safety Report 24620397 (Version 1)
Quarter: 2024Q4

REPORT INFORMATION
  Report Type: Spontaneous
  Country: FR (occurrence: FR)
  Receive Date: 20241114
  Receipt Date: 20241114
  Transmission Date: 20250115
  Serious: Yes (Other)
  Sender: ALEXION PHARMACEUTICALS
  Company Number: None

PATIENT
  Age: 71 Year

DRUGS (8)
  1. DAPAGLIFLOZIN [Suspect]
     Active Substance: DAPAGLIFLOZIN
     Indication: Type 2 diabetes mellitus
     Dosage: 10 MILLIGRAM, QD
  2. DAPAGLIFLOZIN [Suspect]
     Active Substance: DAPAGLIFLOZIN
     Dosage: 10 MILLIGRAM, QD
  3. DAPAGLIFLOZIN [Suspect]
     Active Substance: DAPAGLIFLOZIN
     Dosage: 10 MILLIGRAM, QD
  4. DAPAGLIFLOZIN [Suspect]
     Active Substance: DAPAGLIFLOZIN
     Dosage: 10 MILLIGRAM, QD
  5. VILDAGLIPTIN [Suspect]
     Active Substance: VILDAGLIPTIN
     Indication: Type 2 diabetes mellitus
     Dosage: 50 MILLIGRAM, QD
  6. VILDAGLIPTIN [Suspect]
     Active Substance: VILDAGLIPTIN
     Dosage: 50 MILLIGRAM, QD
  7. BISOPROLOL FUMARATE [Suspect]
     Active Substance: BISOPROLOL FUMARATE
     Indication: Hypertension
  8. BISOPROLOL FUMARATE [Suspect]
     Active Substance: BISOPROLOL FUMARATE

REACTIONS (1)
  - Hypercalcaemia [Not Recovered/Not Resolved]
